FAERS Safety Report 23691669 (Version 1)
Quarter: 2024Q2

REPORT INFORMATION
  Report Type: Spontaneous
  Country: US (occurrence: US)
  Receive Date: 20240401
  Receipt Date: 20240401
  Transmission Date: 20240716
  Serious: No
  Sender: FDA-Public Use
  Company Number: US-TEVA-VS-3145440

PATIENT
  Age: 50 Year
  Sex: Female
  Weight: 79.38 kg

DRUGS (5)
  1. AJOVY [Suspect]
     Active Substance: FREMANEZUMAB-VFRM
     Indication: Migraine
     Dosage: FREMANEZUMAB-VFRM 225/1.5 MG/ML
     Route: 065
     Dates: start: 202308
  2. AJOVY [Suspect]
     Active Substance: FREMANEZUMAB-VFRM
  3. GABAPENTIN [Concomitant]
     Active Substance: GABAPENTIN
     Dosage: 300 TO 900 MG AT BEDTIME DEPENDING ON FLARE
  4. AXERT [Concomitant]
     Active Substance: ALMOTRIPTAN MALATE
     Indication: Migraine
  5. FLEXERIL [Concomitant]
     Active Substance: CYCLOBENZAPRINE HYDROCHLORIDE
     Dosage: ONCE OR TWICE A WEEK

REACTIONS (3)
  - Ovulation disorder [Unknown]
  - Menstrual disorder [Unknown]
  - Cervical discharge [Unknown]

NARRATIVE: CASE EVENT DATE: 20230801
